FAERS Safety Report 24806010 (Version 10)
Quarter: 2025Q3

REPORT INFORMATION
  Report Type: Spontaneous
  Country: US (occurrence: US)
  Receive Date: 20250103
  Receipt Date: 20250815
  Transmission Date: 20251020
  Serious: Yes (Other)
  Sender: PFIZER
  Company Number: US-PFIZER INC-202500001008

PATIENT
  Age: 62 Year
  Sex: Female

DRUGS (3)
  1. TUKYSA [Suspect]
     Active Substance: TUCATINIB
     Indication: Neoplasm malignant
     Dosage: 150MG TAKE 1 TABLET TWICE A DAY, AND TUKYSA 50MG TAKE 2 TABLETS TWICE A DAY
     Route: 048
  2. TUKYSA [Suspect]
     Active Substance: TUCATINIB
     Dosage: TUKYSA 150MG, 2 TABLETS, TWICE DAILY
     Route: 048
  3. TUKYSA [Suspect]
     Active Substance: TUCATINIB
     Dosage: TUKYSA 150MG WITH A DOSING 300 MG DAILY

REACTIONS (4)
  - Malignant neoplasm progression [Not Recovered/Not Resolved]
  - Metastases to central nervous system [Not Recovered/Not Resolved]
  - Noninfective encephalitis [Unknown]
  - Fatigue [Unknown]
